FAERS Safety Report 10021153 (Version 1)
Quarter: 2014Q1

REPORT INFORMATION
  Report Type: Spontaneous
  Country: US (occurrence: None)
  Receive Date: 20140318
  Receipt Date: 20140318
  Transmission Date: 20141002
  Serious: Yes (Life-Threatening)
  Sender: FDA-Public Use
  Company Number: None

PATIENT
  Age: 24 Year
  Sex: Female
  Weight: 52.16 kg

DRUGS (1)
  1. LEXAPRO [Suspect]
     Indication: POSTPARTUM DEPRESSION
     Dosage: 1 TAB
     Route: 048
     Dates: end: 20140301

REACTIONS (6)
  - Dizziness [None]
  - Malaise [None]
  - Suicidal ideation [None]
  - Gait disturbance [None]
  - Thinking abnormal [None]
  - Drug dependence [None]
